FAERS Safety Report 8156054-2 (Version None)
Quarter: 2012Q1

REPORT INFORMATION
  Report Type: 
  Country: None (occurrence: None)
  Receive Date: 20120222
  Receipt Date: 20120214
  Transmission Date: 20120608
  Serious: Yes (Hospitalization)
  Sender: FDA-Public Use
  Company Number: US-UCBSA-051583

PATIENT
  Age: 26 Year
  Sex: Female
  Weight: 46.9 kg

DRUGS (13)
  1. XANAX [Concomitant]
     Indication: ANXIETY
     Route: 048
  2. RIFAXIMIN [Concomitant]
     Indication: CROHN'S DISEASE
     Route: 048
  3. OPIUM [Concomitant]
     Indication: PAIN
     Dosage: 10 MG/ML, 0.6 MI
  4. LEVAQUIN [Concomitant]
     Indication: CROHN'S DISEASE
  5. CERTOLIZUMAB PEGOL [Suspect]
     Indication: CROHN'S DISEASE
     Route: 058
     Dates: start: 20120112, end: 20120124
  6. DIPHENOXYLATE HCL + ATROPINE SULFATE [Concomitant]
     Indication: CROHN'S DISEASE
     Dosage: 2.5-0.025 MG
     Route: 048
  7. APRISO [Concomitant]
     Indication: CROHN'S DISEASE
     Route: 048
  8. ZOLOFT [Concomitant]
     Indication: DEPRESSION
     Route: 048
  9. NEXIUM [Concomitant]
     Indication: GASTROOESOPHAGEAL REFLUX DISEASE
     Route: 048
  10. CANASA [Concomitant]
     Indication: CROHN'S DISEASE
  11. PERCOCET [Concomitant]
     Indication: PAIN MANAGEMENT
     Dosage: 5-325, 1-2 TABS
     Route: 048
  12. AMBIEN [Concomitant]
     Indication: SLEEP DISORDER
     Route: 048
  13. AMOXICILLIN [Concomitant]
     Indication: CROHN'S DISEASE
     Route: 048

REACTIONS (1)
  - INFLUENZA [None]
